FAERS Safety Report 25391782 (Version 5)
Quarter: 2025Q4

REPORT INFORMATION
  Report Type: Report from Study
  Country: EU (occurrence: EU)
  Receive Date: 20250603
  Receipt Date: 20251024
  Transmission Date: 20260118
  Serious: Yes (Hospitalization)
  Sender: ABBVIE
  Company Number: EU-ABBVIE-6306125

PATIENT
  Sex: Female

DRUGS (2)
  1. FOSCARBIDOPA\FOSLEVODOPA [Suspect]
     Active Substance: FOSCARBIDOPA\FOSLEVODOPA
     Indication: Parkinson^s disease
     Dosage: CRN: 0.20 ML/H, CR: 0.22 ML/H, CRH: 0.25 ML/H, ED: 0.15 ML
     Route: 058
     Dates: start: 20240930
  2. FOSCARBIDOPA\FOSLEVODOPA [Suspect]
     Active Substance: FOSCARBIDOPA\FOSLEVODOPA
     Dosage: SD: 0.6ML, CRN: 0.17 ML/H, CR: 0.22 ML/H, CRH: 0.25 ML/H, ED: 0.15 ML
     Route: 058

REACTIONS (1)
  - Spinal stenosis [Not Recovered/Not Resolved]
